FAERS Safety Report 4668356-2 (Version None)
Quarter: 2005Q2

REPORT INFORMATION
  Report Type: 
  Country: None (occurrence: None)
  Receive Date: 20050523
  Receipt Date: 20050224
  Transmission Date: 20051028
  Serious: Yes (Hospitalization, Disabling, Other)
  Sender: FDA-Public Use
  Company Number: PHEH2005US02480

PATIENT
  Age: 83 Year
  Sex: Female

DRUGS (3)
  1. ZOMETA [Suspect]
  2. AREDIA [Suspect]
  3. FOSAMAX [Concomitant]

REACTIONS (11)
  - DENTAL DISCOMFORT [None]
  - DENTAL OPERATION [None]
  - FAILURE OF IMPLANT [None]
  - GENERAL NUTRITION DISORDER [None]
  - HYPERBARIC OXYGEN THERAPY [None]
  - JAW DISORDER [None]
  - ORAL PAIN [None]
  - ORAL SURGERY [None]
  - OSTEOMYELITIS [None]
  - SWELLING [None]
  - WOUND DEBRIDEMENT [None]
